FAERS Safety Report 8962475 (Version 2)
Quarter: 2013Q1

REPORT INFORMATION
  Report Type: Report from Study
  Country: PL (occurrence: PL)
  Receive Date: 20121213
  Receipt Date: 20130110
  Transmission Date: 20140127
  Serious: Yes (Hospitalization, Other)
  Sender: FDA-Public Use
  Company Number: PL-BRISTOL-MYERS SQUIBB COMPANY-17172685

PATIENT
  Age: 77 Year
  Sex: Male

DRUGS (8)
  1. SAXAGLIPTIN [Suspect]
     Indication: TYPE 2 DIABETES MELLITUS
     Dates: start: 20101104
  2. DIAPREL [Suspect]
     Indication: TYPE 2 DIABETES MELLITUS
     Dosage: UPTO 11JAN11:120MG,13-13JAN11:15MG,14-14JAN11:30MG,15JAN11 ONWARDS 90MG
  3. BLINDED: PLACEBO [Suspect]
     Indication: TYPE 2 DIABETES MELLITUS
     Dates: start: 20101104
  4. ACETYLSALICYLIC ACID [Suspect]
  5. WARFARIN SODIUM [Suspect]
     Dates: start: 20111115
  6. PRADAXA [Suspect]
     Dates: start: 20121108, end: 20121109
  7. DOPEGYT [Concomitant]
     Dates: start: 20101228
  8. TRITACE [Concomitant]
     Dates: start: 20101228

REACTIONS (1)
  - Pleural haemorrhage [Recovered/Resolved]
